FAERS Safety Report 8823282 (Version 29)
Quarter: 2018Q2

REPORT INFORMATION
  Report Type: Report from Study
  Country: CA (occurrence: CA)
  Receive Date: 20121003
  Receipt Date: 20180418
  Transmission Date: 20180711
  Serious: Yes (Hospitalization, Other)
  Sender: FDA-Public Use
  Company Number: CA-ROCHE-1138095

PATIENT
  Age: 64 Year
  Sex: Female
  Weight: 78.2 kg

DRUGS (12)
  1. OMEPRAZOLE. [Concomitant]
     Active Substance: OMEPRAZOLE
  2. TRAMACET [Suspect]
     Active Substance: ACETAMINOPHEN\TRAMADOL
     Indication: PRODUCT USED FOR UNKNOWN INDICATION
     Route: 065
  3. OMEGA 3 [Concomitant]
     Active Substance: OMEGA-3 FATTY ACIDS
  4. LOSEC [Concomitant]
     Active Substance: OMEPRAZOLE
  5. ARAVA [Concomitant]
     Active Substance: LEFLUNOMIDE
  6. RITUXAN [Suspect]
     Active Substance: RITUXIMAB
     Indication: RHEUMATOID ARTHRITIS
     Dosage: MOST RECENT DOSE OF RITUXIMAB: 13/SEP/2017
     Route: 042
     Dates: start: 201201
  7. RITUXAN [Suspect]
     Active Substance: RITUXIMAB
     Dosage: DAY 1 AND 15;  LAST DOSE OF RITUXIMAB ON 18/NOV /2013
     Route: 042
     Dates: start: 20120905
  8. DIPHENHYDRAMINE HCL [Concomitant]
     Active Substance: DIPHENHYDRAMINE HYDROCHLORIDE
     Indication: PREMEDICATION
     Route: 048
     Dates: start: 20120905
  9. METHYLPREDNISOLONE. [Concomitant]
     Active Substance: METHYLPREDNISOLONE
     Indication: PREMEDICATION
     Route: 042
     Dates: start: 20120905
  10. ACETAMINOPHEN. [Concomitant]
     Active Substance: ACETAMINOPHEN
     Indication: PREMEDICATION
     Route: 048
     Dates: start: 20120905
  11. MIRTAZAPINE. [Concomitant]
     Active Substance: MIRTAZAPINE
  12. ATACAND [Concomitant]
     Active Substance: CANDESARTAN CILEXETIL

REACTIONS (29)
  - Hypertension [Unknown]
  - Pain [Recovered/Resolved]
  - Weight increased [Unknown]
  - Blood pressure fluctuation [Unknown]
  - Pyrexia [Unknown]
  - Productive cough [Not Recovered/Not Resolved]
  - Dyspnoea [Recovered/Resolved]
  - Alopecia [Not Recovered/Not Resolved]
  - Dyspnoea [Recovered/Resolved]
  - Rales [Unknown]
  - Sinus congestion [Not Recovered/Not Resolved]
  - Haemoglobin decreased [Unknown]
  - Hormone level abnormal [Unknown]
  - Bronchitis [Recovering/Resolving]
  - Oxygen saturation decreased [Unknown]
  - Arthropathy [Unknown]
  - Wound infection [Not Recovered/Not Resolved]
  - Abdominal pain [Not Recovered/Not Resolved]
  - Arthralgia [Unknown]
  - Cough [Recovering/Resolving]
  - Lower respiratory tract infection [Unknown]
  - Transient ischaemic attack [Unknown]
  - Pulmonary fibrosis [Not Recovered/Not Resolved]
  - Tooth disorder [Unknown]
  - Nasopharyngitis [Not Recovered/Not Resolved]
  - Respiratory disorder [Unknown]
  - Localised infection [Recovered/Resolved]
  - Balance disorder [Unknown]
  - Laryngitis [Recovered/Resolved]

NARRATIVE: CASE EVENT DATE: 20120921
